FAERS Safety Report 19963917 (Version 1)
Quarter: 2021Q4

REPORT INFORMATION
  Report Type: Spontaneous
  Country: US (occurrence: US)
  Receive Date: 20211014
  Receipt Date: 20211014
  Transmission Date: 20220304
  Serious: No
  Sender: FDA-Public Use
  Company Number: None

PATIENT
  Age: 52 Year
  Sex: Female

DRUGS (1)
  1. SUNITINIB MALATE [Suspect]
     Active Substance: SUNITINIB MALATE
     Route: 048

REACTIONS (8)
  - Memory impairment [None]
  - Wrong dose [None]
  - Headache [None]
  - Fatigue [None]
  - Epistaxis [None]
  - Dry skin [None]
  - Yellow skin [None]
  - COVID-19 [None]

NARRATIVE: CASE EVENT DATE: 20210902
